FAERS Safety Report 10566214 (Version 3)
Quarter: 2015Q1

REPORT INFORMATION
  Report Type: Spontaneous
  Country: US (occurrence: US)
  Receive Date: 20141105
  Receipt Date: 20150120
  Transmission Date: 20150720
  Serious: Yes (Other)
  Sender: FDA-Public Use
  Company Number: US-ACORDA-ACO_26529_2011

PATIENT
  Age: 59 Year
  Sex: Female

DRUGS (2)
  1. AMPYRA [Suspect]
     Active Substance: DALFAMPRIDINE
     Indication: MULTIPLE SCLEROSIS
  2. AMPYRA [Suspect]
     Active Substance: DALFAMPRIDINE
     Indication: GAIT DISTURBANCE
     Dosage: 10 MG, BID
     Route: 048
     Dates: start: 20100629

REACTIONS (10)
  - Grip strength decreased [Unknown]
  - Head injury [Unknown]
  - Tremor [Unknown]
  - Hypoaesthesia [Unknown]
  - Fall [Unknown]
  - Arthropathy [Unknown]
  - Pain [Unknown]
  - Dizziness [Unknown]
  - Loss of consciousness [Unknown]
  - Peripheral swelling [Unknown]

NARRATIVE: CASE EVENT DATE: 201104
